FAERS Safety Report 14916522 (Version 1)
Quarter: 2018Q2

REPORT INFORMATION
  Report Type: Spontaneous
  Country: IT (occurrence: IT)
  Receive Date: 20180519
  Receipt Date: 20180519
  Transmission Date: 20180711
  Serious: Yes (Other)
  Sender: FDA-Public Use
  Company Number: IT-AUROBINDO-AUR-APL-2018-026228

PATIENT
  Age: 26 Year
  Sex: Female
  Weight: 47 kg

DRUGS (1)
  1. CIPROFLOXACIN FILM-COATED TABLETS [Suspect]
     Active Substance: CIPROFLOXACIN
     Indication: CYSTITIS
     Dosage: 250 MILLIGRAM, ONCE A DAY
     Route: 048
     Dates: start: 20180426, end: 20180427

REACTIONS (2)
  - Vomiting [Unknown]
  - Dysentery [Unknown]

NARRATIVE: CASE EVENT DATE: 20180427
